FAERS Safety Report 14597027 (Version 3)
Quarter: 2018Q2

REPORT INFORMATION
  Report Type: Spontaneous
  Country: AT (occurrence: AT)
  Receive Date: 20180305
  Receipt Date: 20180404
  Transmission Date: 20180711
  Serious: Yes (Other)
  Sender: FDA-Public Use
  Company Number: AT-AMGEN-AUTSP2018028365

PATIENT
  Age: 77 Year
  Sex: Female

DRUGS (1)
  1. PROLIA [Suspect]
     Active Substance: DENOSUMAB
     Indication: OSTEOPOROSIS
     Dosage: UNK UNK, Q6MO
     Route: 058
     Dates: start: 2014, end: 201512

REACTIONS (2)
  - Tooth extraction [Unknown]
  - Spinal fracture [Unknown]

NARRATIVE: CASE EVENT DATE: 201606
